FAERS Safety Report 15991476 (Version 2)
Quarter: 2019Q1

REPORT INFORMATION
  Report Type: Spontaneous
  Country: US (occurrence: US)
  Receive Date: 20190221
  Receipt Date: 20190227
  Transmission Date: 20190418
  Serious: Yes (Other)
  Sender: FDA-Public Use
  Company Number: US-009507513-1902USA005636

PATIENT
  Sex: Female

DRUGS (2)
  1. INTERFERON (UNSPECIFIED) [Suspect]
     Active Substance: UNSPECIFIED INGREDIENT
     Indication: HEPATITIS C
     Dosage: UNK
     Dates: start: 2007, end: 2008
  2. REBETOL [Suspect]
     Active Substance: RIBAVIRIN
     Indication: HEPATITIS C
     Dosage: UNK
     Dates: start: 2007, end: 2008

REACTIONS (6)
  - Acute myocardial infarction [Unknown]
  - Dyspnoea [Recovered/Resolved]
  - Abnormal loss of weight [Recovered/Resolved]
  - Alopecia [Recovered/Resolved]
  - Drug effective for unapproved indication [Recovered/Resolved]
  - Fatigue [Recovered/Resolved]

NARRATIVE: CASE EVENT DATE: 2007
